FAERS Safety Report 5660293-X (Version None)
Quarter: 2008Q1

REPORT INFORMATION
  Report Type: 
  Country: None (occurrence: None)
  Receive Date: 20080306
  Receipt Date: 20080220
  Transmission Date: 20080703
  Serious: Yes (Hospitalization)
  Sender: FDA-Public Use
  Company Number: S08-FRA-00800-01

PATIENT
  Age: 60 Year
  Sex: Male

DRUGS (4)
  1. CITALOPRAM HYDROBROMIDE [Suspect]
  2. LEVODOPA / BENSERAZIDE [Suspect]
     Indication: NEURODEGENERATIVE DISORDER
  3. MOTILIUM [Concomitant]
  4. RAMIPRIL [Concomitant]

REACTIONS (2)
  - COLITIS [None]
  - DIARRHOEA [None]
